FAERS Safety Report 9893308 (Version 2)
Quarter: 2014Q1

REPORT INFORMATION
  Report Type: Spontaneous
  Country: SI (occurrence: SI)
  Receive Date: 20140213
  Receipt Date: 20140218
  Transmission Date: 20141002
  Serious: Yes (Hospitalization)
  Sender: FDA-Public Use
  Company Number: SI-JNJFOC-20140203396

PATIENT
  Age: 40 Year
  Sex: Female

DRUGS (3)
  1. REMICADE [Suspect]
     Indication: ANKYLOSING SPONDYLITIS
     Route: 042
  2. REMICADE [Suspect]
     Indication: ANKYLOSING SPONDYLITIS
     Dosage: 3RD DOSE
     Route: 042
     Dates: start: 201311
  3. METHOTREXATE [Suspect]
     Indication: PRODUCT USED FOR UNKNOWN INDICATION
     Route: 065

REACTIONS (9)
  - Thrombocytopenia [Recovering/Resolving]
  - Vasculitis [Not Recovered/Not Resolved]
  - Psoriasis [Recovering/Resolving]
  - Urinary tract infection [Unknown]
  - Respiratory tract infection [Unknown]
  - Haemoglobin decreased [Recovering/Resolving]
  - Aphthous stomatitis [Unknown]
  - Epidermolysis [Unknown]
  - Uterine leiomyoma [Unknown]
